FAERS Safety Report 21096563 (Version 1)
Quarter: 2022Q3

REPORT INFORMATION
  Report Type: Spontaneous
  Country: US (occurrence: US)
  Receive Date: 20220718
  Receipt Date: 20220718
  Transmission Date: 20221026
  Serious: No
  Sender: FDA-Public Use
  Company Number: US-TEVA-2022-US-2051724

PATIENT
  Age: 37 Year
  Sex: Male

DRUGS (1)
  1. COPAXONE [Suspect]
     Active Substance: GLATIRAMER ACETATE
     Indication: Product used for unknown indication
     Dosage: FORM STRENGTH UNKNOWN
     Route: 065

REACTIONS (6)
  - Dyspnoea [Unknown]
  - Flushing [Unknown]
  - Pruritus [Unknown]
  - Urticaria [Unknown]
  - Diarrhoea [Unknown]
  - Vomiting [Unknown]
